FAERS Safety Report 6648244-2 (Version None)
Quarter: 2010Q1

REPORT INFORMATION
  Report Type: 
  Country: None (occurrence: None)
  Receive Date: 20100318
  Receipt Date: 20100305
  Transmission Date: 20100710
  Serious: Yes (Hospitalization)
  Sender: FDA-Public Use
  Company Number: 008531

PATIENT
  Sex: Female

DRUGS (3)
  1. CERTOLIZUMAB PEGOL (CERTOLIZUMAB PEGOL) [Suspect]
     Dosage: (400 MG 1X2WEEKS, CDP870-027 SUBCUTANEOUS), (400 MG 1X/2 WEEKS SUBCUTANEOUS), (200 MG 1X/2 WEEKS SUB
     Route: 058
     Dates: start: 20050623, end: 20060608
  2. CERTOLIZUMAB PEGOL (CERTOLIZUMAB PEGOL) [Suspect]
     Dosage: (400 MG 1X2WEEKS, CDP870-027 SUBCUTANEOUS), (400 MG 1X/2 WEEKS SUBCUTANEOUS), (200 MG 1X/2 WEEKS SUB
     Route: 058
     Dates: start: 20060622, end: 20071206
  3. CERTOLIZUMAB PEGOL (CERTOLIZUMAB PEGOL) [Suspect]
     Dosage: (400 MG 1X2WEEKS, CDP870-027 SUBCUTANEOUS), (400 MG 1X/2 WEEKS SUBCUTANEOUS), (200 MG 1X/2 WEEKS SUB
     Route: 058
     Dates: start: 20071220, end: 20100225

REACTIONS (1)
  - PNEUMONIA [None]
